FAERS Safety Report 9848088 (Version 2)
Quarter: 2014Q1

REPORT INFORMATION
  Report Type: Spontaneous
  Country: US (occurrence: US)
  Receive Date: 20140128
  Receipt Date: 20140203
  Transmission Date: 20141002
  Serious: Yes (Other)
  Sender: FDA-Public Use
  Company Number: US-JNJFOC-20140109893

PATIENT
  Age: 58 Year
  Sex: Female
  Weight: 47.63 kg

DRUGS (1)
  1. CHILDRENS TYLENOL SUSPENSION LIQUID CHERRY [Suspect]
     Indication: NASOPHARYNGITIS
     Dosage: UP TO 15 ML
     Route: 048
     Dates: start: 20140111, end: 20140111

REACTIONS (4)
  - Convulsion [Recovering/Resolving]
  - Rash generalised [Recovering/Resolving]
  - Off label use [Unknown]
  - Drug administered to patient of inappropriate age [Unknown]
